FAERS Safety Report 8954804 (Version 1)
Quarter: 2012Q4

REPORT INFORMATION
  Report Type: 
  Country: US (occurrence: US)
  Receive Date: 20121210
  Receipt Date: 20121210
  Transmission Date: 20130627
  Serious: Yes (Hospitalization)
  Sender: FDA-Public Use
  Company Number: US-SANOFI-AVENTIS-2012SA088619

PATIENT
  Age: 64 Year
  Sex: Female

DRUGS (5)
  1. LANTUS SOLOSTAR [Suspect]
     Indication: TYPE II DIABETES MELLITUS
     Dosage: 50 units and then 40 units twice a day, 4-5 years ago; currently on 30 units once daily
     Route: 058
  2. LANTUS SOLOSTAR [Suspect]
     Indication: TYPE II DIABETES MELLITUS
     Dosage: 50 units and then 40 units twice a day, 4-5 years ago; currently on 30 units once daily
     Route: 058
  3. SOLOSTAR [Suspect]
     Indication: TYPE II DIABETES MELLITUS
  4. SOLOSTAR [Suspect]
     Indication: TYPE II DIABETES MELLITUS
  5. NOVOLOG [Concomitant]

REACTIONS (2)
  - Cardiac disorder [Unknown]
  - Blood glucose increased [Unknown]
